FAERS Safety Report 19589439 (Version 1)
Quarter: 2021Q3

REPORT INFORMATION
  Report Type: Spontaneous
  Country: US (occurrence: US)
  Receive Date: 20210721
  Receipt Date: 20210721
  Transmission Date: 20211014
  Serious: Yes (Other)
  Sender: FDA-Public Use
  Company Number: US-PERRIGO-21US009541

PATIENT
  Age: 51 Year
  Sex: Male
  Weight: 74.83 kg

DRUGS (2)
  1. NAPROXEN SODIUM. [Suspect]
     Active Substance: NAPROXEN SODIUM
     Indication: ARTHRALGIA
     Dosage: 660 MG, SINGLE
     Route: 048
     Dates: start: 20210711, end: 20210711
  2. EXCEDRIN [Concomitant]
     Active Substance: ACETAMINOPHEN\ASPIRIN\CAFFEINE
     Indication: ARTHRALGIA
     Dosage: UNKNOWN AT 0730
     Route: 065
     Dates: start: 20210711, end: 20210711

REACTIONS (7)
  - Erythema [Recovered/Resolved]
  - Loss of consciousness [Recovered/Resolved]
  - Paraesthesia [Recovered/Resolved]
  - Overdose [Recovered/Resolved]
  - Malaise [Recovered/Resolved]
  - Road traffic accident [Recovered/Resolved]
  - Vision blurred [Recovered/Resolved]

NARRATIVE: CASE EVENT DATE: 20210711
